FAERS Safety Report 14620594 (Version 1)
Quarter: 2018Q1

REPORT INFORMATION
  Report Type: Spontaneous
  Country: US (occurrence: US)
  Receive Date: 20180309
  Receipt Date: 20180309
  Transmission Date: 20180509
  Serious: Yes (Other)
  Sender: FDA-Public Use
  Company Number: None

PATIENT
  Age: 46 Year
  Sex: Female

DRUGS (23)
  1. FLUCONAZOLE. [Concomitant]
     Active Substance: FLUCONAZOLE
  2. TRAMADOL. [Concomitant]
     Active Substance: TRAMADOL
  3. CIMZIA [Suspect]
     Active Substance: CERTOLIZUMAB PEGOL
     Indication: PSORIASIS
     Route: 058
     Dates: start: 20170623
  4. TOPAMAX [Concomitant]
     Active Substance: TOPIRAMATE
  5. PREDNISONE. [Concomitant]
     Active Substance: PREDNISONE
  6. CIPRO [Concomitant]
     Active Substance: CIPROFLOXACIN HYDROCHLORIDE
  7. AMOXICILLIN. [Concomitant]
     Active Substance: AMOXICILLIN
  8. AMOX/CLAV [Concomitant]
     Active Substance: AMOXICILLIN\CLAVULANATE POTASSIUM
  9. ULTRAM [Concomitant]
     Active Substance: TRAMADOL HYDROCHLORIDE
  10. SULFASZINE [Concomitant]
  11. ZIPSOR [Concomitant]
     Active Substance: DICLOFENAC POTASSIUM
  12. HYDROCODONE [Concomitant]
     Active Substance: HYDROCODONE
  13. TRIAZOLAM. [Concomitant]
     Active Substance: TRIAZOLAM
  14. SYMBICORT [Concomitant]
     Active Substance: BUDESONIDE\FORMOTEROL FUMARATE DIHYDRATE
  15. LIDOCAINE. [Concomitant]
     Active Substance: LIDOCAINE
  16. METOPROLOL. [Concomitant]
     Active Substance: METOPROLOL
  17. DOXYCYCLINE. [Concomitant]
     Active Substance: DOXYCYCLINE
  18. DICLOFENAC [Concomitant]
     Active Substance: DICLOFENAC
  19. TROKENDI [Concomitant]
     Active Substance: TOPIRAMATE
  20. MORPHINE [Concomitant]
     Active Substance: MORPHINE
  21. FLUTICASONE. [Concomitant]
     Active Substance: FLUTICASONE
  22. ESTRADIOL. [Concomitant]
     Active Substance: ESTRADIOL
  23. CEFDINIR. [Concomitant]
     Active Substance: CEFDINIR

REACTIONS (1)
  - Therapy cessation [None]
